FAERS Safety Report 5197085-4 (Version None)
Quarter: 2007Q1

REPORT INFORMATION
  Report Type: 
  Country: None (occurrence: None)
  Receive Date: 20070103
  Receipt Date: 20061220
  Transmission Date: 20070707
  Serious: Yes (Hospitalization, Other)
  Sender: FDA-Public Use
  Company Number: US-ELI_LILLY_AND_COMPANY-US200612003720

PATIENT
  Age: 65 Year
  Sex: Male

DRUGS (3)
  1. HUMALOG [Suspect]
     Indication: DIABETES MELLITUS
     Dosage: 26 U, 3/D
     Dates: start: 19960101
  2. HUMALOG [Suspect]
     Dosage: 40 U, 3/D
     Dates: start: 20061201
  3. HUMULIN N [Suspect]
     Indication: DIABETES MELLITUS
     Dosage: 75 U, 2/D
     Dates: start: 19860101

REACTIONS (8)
  - BLOOD GLUCOSE INCREASED [None]
  - CARDIAC DISORDER [None]
  - CARDIAC FAILURE [None]
  - CARDIAC PACEMAKER INSERTION [None]
  - DRUG INEFFECTIVE [None]
  - IMPLANTABLE DEFIBRILLATOR INSERTION [None]
  - MYOCARDIAL INFARCTION [None]
  - PHARMACEUTICAL PRODUCT COMPLAINT [None]
